FAERS Safety Report 14157726 (Version 1)
Quarter: 2017Q4

REPORT INFORMATION
  Report Type: Spontaneous
  Country: GB (occurrence: GB)
  Receive Date: 20171103
  Receipt Date: 20171103
  Transmission Date: 20180321
  Serious: Yes (Other)
  Sender: FDA-Public Use
  Company Number: GB-TEVA-820044ACC

PATIENT
  Age: 38 Year
  Sex: Female
  Weight: 62 kg

DRUGS (1)
  1. DISULFIRAM. [Suspect]
     Active Substance: DISULFIRAM
     Route: 065
     Dates: start: 20170706

REACTIONS (1)
  - Alanine aminotransferase increased [Not Recovered/Not Resolved]

NARRATIVE: CASE EVENT DATE: 20171010
